FAERS Safety Report 10666794 (Version 1)
Quarter: 2014Q4

REPORT INFORMATION
  Report Type: Spontaneous
  Country: US (occurrence: None)
  Receive Date: 20141219
  Receipt Date: 20141219
  Transmission Date: 20150529
  Serious: Yes (Other)
  Sender: FDA-Public Use
  Company Number: None

PATIENT
  Age: 84 Year
  Sex: Female
  Weight: 72.58 kg

DRUGS (4)
  1. METHYLPREDNISOLONE. [Suspect]
     Active Substance: METHYLPREDNISOLONE
     Indication: ORAL INFECTION
     Dates: start: 20141129
  2. METHLYPREDNISOLONE/CLARITHROMYCIN COMPOUNDED [Concomitant]
  3. MULTI-VITAMIN [Concomitant]
     Active Substance: .ALPHA.-TOCOPHEROL ACETATE, DL-\ASCORBIC ACID\CYANOCOBALAMIN\FLUORIDE ION\FOLIC ACID\NIACIN\PYRIDOXINE\RIBOFLAVIN\THIAMINE\VITAMIN A\VITAMIN D
  4. METHYLPREDNISOLONE. [Suspect]
     Active Substance: METHYLPREDNISOLONE
     Indication: PHARYNGITIS
     Dates: start: 20141129

REACTIONS (6)
  - Cough [None]
  - Product contamination microbial [None]
  - Night sweats [None]
  - Nausea [None]
  - Dizziness [None]
  - Memory impairment [None]

NARRATIVE: CASE EVENT DATE: 20141129
